FAERS Safety Report 8265675-8 (Version None)
Quarter: 2012Q2

REPORT INFORMATION
  Report Type: 
  Country: None (occurrence: None)
  Receive Date: 20120404
  Receipt Date: 20120328
  Transmission Date: 20120825
  Serious: Yes (Death)
  Sender: FDA-Public Use
  Company Number: DSA_55859_2012

PATIENT
  Sex: Female

DRUGS (1)
  1. XENAZINE [Suspect]
     Indication: HUNTINGTON'S DISEASE
     Dosage: (37.5 MG BID ORAL)
     Route: 048
     Dates: start: 20100719, end: 20120328

REACTIONS (1)
  - NEOPLASM MALIGNANT [None]
